FAERS Safety Report 9728985 (Version 1)
Quarter: 2013Q4

REPORT INFORMATION
  Report Type: Spontaneous
  Country: US (occurrence: US)
  Receive Date: 20131204
  Receipt Date: 20131204
  Transmission Date: 20140711
  Serious: No
  Sender: FDA-Public Use
  Company Number: US-ENDO PHARMACEUTICALS INC.-METH20120003

PATIENT
  Age: 81 Year
  Sex: Female
  Weight: 48.58 kg

DRUGS (2)
  1. METHYLPREDNISOLONE [Suspect]
     Indication: SINUS DISORDER
     Dosage: 12 MG TAPER
     Route: 048
     Dates: start: 20120207
  2. METHYLPREDNISOLONE [Suspect]
     Indication: COUGH

REACTIONS (1)
  - Abdominal discomfort [Not Recovered/Not Resolved]
